FAERS Safety Report 4563394-2 (Version None)
Quarter: 2005Q1

REPORT INFORMATION
  Report Type: 
  Country: None (occurrence: None)
  Receive Date: 20050128
  Receipt Date: 20040329
  Transmission Date: 20050727
  Serious: No
  Sender: FDA-Public Use
  Company Number: US-GLAXOSMITHKLINE-A0504867A

PATIENT
  Age: 39 Year
  Sex: Male

DRUGS (3)
  1. WELLBUTRIN [Suspect]
     Indication: DEPRESSION
     Route: 048
     Dates: start: 19990101
  2. AMBIEN [Concomitant]
  3. XANAX [Concomitant]

REACTIONS (3)
  - AGGRESSION [None]
  - HOSTILITY [None]
  - INSOMNIA [None]
